FAERS Safety Report 7699978-2 (Version None)
Quarter: 2011Q3

REPORT INFORMATION
  Report Type: 
  Country: None (occurrence: None)
  Receive Date: 20110815
  Receipt Date: 20110805
  Transmission Date: 20111222
  Serious: Yes (Hospitalization)
  Sender: FDA-Public Use
  Company Number: DKLU1063779

PATIENT
  Age: 43 Year
  Sex: Female

DRUGS (1)
  1. SABRIL [Suspect]
     Indication: EPILEPSY
     Dosage: ORAL
     Route: 048
     Dates: start: 20100201, end: 20100101

REACTIONS (7)
  - ENCEPHALOPATHY [None]
  - URINARY TRACT INFECTION [None]
  - CONDITION AGGRAVATED [None]
  - AMMONIA INCREASED [None]
  - AMNESIA [None]
  - CONFUSIONAL STATE [None]
  - FATIGUE [None]
